FAERS Safety Report 18672807 (Version 1)
Quarter: 2020Q4

REPORT INFORMATION
  Report Type: Report from Study
  Country: JP (occurrence: JP)
  Receive Date: 20201228
  Receipt Date: 20201228
  Transmission Date: 20210114
  Serious: Yes (Other)
  Sender: FDA-Public Use
  Company Number: JP-DSJP-DSJ-2019-135991AA

PATIENT
  Age: 83 Year
  Sex: Female
  Weight: 58 kg

DRUGS (19)
  1. LIXIANA TABLETS [Suspect]
     Active Substance: EDOXABAN TOSYLATE
     Indication: PRODUCT USED FOR UNKNOWN INDICATION
     Dosage: 30MG/DAY
     Route: 048
     Dates: start: 20171026, end: 20180929
  2. NEXIUM [Concomitant]
     Active Substance: ESOMEPRAZOLE MAGNESIUM
     Dosage: 20MG/DAY
     Route: 048
  3. AMLODIPINE                         /00972402/ [Concomitant]
     Active Substance: AMLODIPINE BESYLATE
     Dosage: UNK
     Route: 048
  4. PITAVASTATIN CALCIUM OD [Concomitant]
     Active Substance: PITAVASTATIN CALCIUM
     Dosage: UNK
     Route: 048
  5. PRASUGREL. [Suspect]
     Active Substance: PRASUGREL
     Dosage: UNK
  6. PRASUGREL. [Suspect]
     Active Substance: PRASUGREL
     Indication: ACUTE MYOCARDIAL INFARCTION
     Dosage: 3.75 MG, QD
     Route: 048
     Dates: start: 20171027, end: 20180130
  7. LASIX [Concomitant]
     Active Substance: FUROSEMIDE
     Dosage: UNK
     Route: 048
  8. URSODEOXYCHOLIC ACID [Concomitant]
     Active Substance: URSODIOL
     Dosage: UNK
     Route: 048
  9. PRASUGREL. [Suspect]
     Active Substance: PRASUGREL
     Dosage: 3.75 MG, QD
     Route: 048
     Dates: start: 20180929, end: 20190115
  10. BISOPROLOL FUMARATE. [Concomitant]
     Active Substance: BISOPROLOL FUMARATE
     Dosage: UNK
     Route: 048
  11. FERROUS SODIUM CITRATE [Concomitant]
     Active Substance: SODIUM FERROUS CITRATE
     Dosage: UNK
     Route: 048
  12. PITAVASTATIN CALCIUM [Concomitant]
     Active Substance: PITAVASTATIN CALCIUM
     Dosage: UNK
     Route: 048
  13. BAYASPIRIN [Suspect]
     Active Substance: ASPIRIN
     Dosage: 100 MG
     Route: 048
     Dates: start: 20180929, end: 20190115
  14. HEPARIN [Concomitant]
     Active Substance: HEPARIN SODIUM
     Dosage: 6000 IU
     Route: 065
  15. LIXIANA OD TABLETS [Suspect]
     Active Substance: EDOXABAN TOSYLATE
     Indication: PRODUCT USED FOR UNKNOWN INDICATION
     Dosage: 30MG/DAY
     Route: 048
     Dates: start: 20180930, end: 20190115
  16. NEXAVAR [Suspect]
     Active Substance: SORAFENIB
     Dosage: UNK
     Route: 048
     Dates: start: 20181220
  17. NOVOLIN N [Concomitant]
     Active Substance: INSULIN HUMAN
     Dosage: UNK
     Route: 058
  18. RYZODEG 70/30 [Concomitant]
     Active Substance: INSULIN ASPART\INSULIN DEGLUDEC
     Dosage: UNK
     Route: 058
  19. FERROMIA [Concomitant]
     Active Substance: SODIUM FERROUS CITRATE
     Dosage: UNK
     Route: 048

REACTIONS (3)
  - Anaemia [Recovered/Resolved]
  - Myocardial ischaemia [Not Recovered/Not Resolved]
  - Anaemia [Recovered/Resolved]

NARRATIVE: CASE EVENT DATE: 20180130
